FAERS Safety Report 24268676 (Version 1)
Quarter: 2024Q3

REPORT INFORMATION
  Report Type: Spontaneous
  Country: US (occurrence: US)
  Receive Date: 20240830
  Receipt Date: 20240830
  Transmission Date: 20241016
  Serious: Yes (Hospitalization)
  Sender: UNITED THERAPEUTICS
  Company Number: US-UNITED THERAPEUTICS-UNT-2024-026312

PATIENT
  Age: 76 Year
  Sex: Female

DRUGS (5)
  1. TYVASO [Suspect]
     Active Substance: TREPROSTINIL
     Indication: Product used for unknown indication
     Dosage: UNK (30 MG)
  2. TYVASO [Suspect]
     Active Substance: TREPROSTINIL
     Dosage: UNK (10 MG)
  3. TYVASO [Suspect]
     Active Substance: TREPROSTINIL
     Dosage: UNK (30 MG)
  4. TYVASO [Suspect]
     Active Substance: TREPROSTINIL
     Dosage: UNK (10 MG)
  5. OPSUMIT [Suspect]
     Active Substance: MACITENTAN
     Indication: Pulmonary arterial hypertension
     Dosage: 10 MG, QD
     Dates: start: 20230611

REACTIONS (5)
  - Dyspnoea [Recovering/Resolving]
  - Tremor [Recovering/Resolving]
  - COVID-19 [Unknown]
  - Visual impairment [Unknown]
  - Dry eye [Unknown]

NARRATIVE: CASE EVENT DATE: 20240601
